FAERS Safety Report 8810039 (Version 1)
Quarter: 2012Q4

REPORT INFORMATION
  Report Type: 
  Country: CA (occurrence: CA)
  Receive Date: 20120926
  Receipt Date: 20120926
  Transmission Date: 20130627
  Serious: Yes (Other)
  Sender: FDA-Public Use
  Company Number: CA-GLAXOSMITHKLINE-A0993574A

PATIENT
  Age: 80 Year
  Sex: Female

DRUGS (3)
  1. VENTOLIN [Suspect]
     Indication: CHRONIC OBSTRUCTIVE PULMONARY DISEASE
     Route: 065
  2. SPIRIVA [Concomitant]
     Indication: CHRONIC OBSTRUCTIVE PULMONARY DISEASE
     Route: 065
  3. SYMBICORT [Concomitant]
     Route: 065

REACTIONS (3)
  - Macular degeneration [Unknown]
  - Blindness [Unknown]
  - Visual impairment [Unknown]
